FAERS Safety Report 9307418 (Version 1)
Quarter: 2013Q2

REPORT INFORMATION
  Report Type: Spontaneous
  Country: CN (occurrence: CN)
  Receive Date: 20130524
  Receipt Date: 20130524
  Transmission Date: 20140414
  Serious: Yes (Other)
  Sender: FDA-Public Use
  Company Number: CN-JNJFOC-20130512246

PATIENT
  Age: 39 Year
  Sex: Male

DRUGS (2)
  1. SPORANOX [Suspect]
     Indication: VIRAL INFECTION
     Route: 048
     Dates: start: 20120805, end: 20120810
  2. POLYENE PHOSPHATIDYLCHOLINE [Suspect]
     Indication: PROPHYLAXIS
     Route: 065
     Dates: start: 20120805

REACTIONS (2)
  - Hepatocellular injury [Recovering/Resolving]
  - Off label use [Unknown]
